FAERS Safety Report 9170503 (Version 2)
Quarter: 2013Q2

REPORT INFORMATION
  Report Type: Spontaneous
  Country: US (occurrence: None)
  Receive Date: 20130308
  Receipt Date: 20130423
  Transmission Date: 20140414
  Serious: Yes (Hospitalization, Other)
  Sender: FDA-Public Use
  Company Number: JPI-P-030160

PATIENT
  Age: 23 Year
  Sex: Female
  Weight: 73.48 kg

DRUGS (17)
  1. XYREM [Suspect]
     Indication: NARCOLEPSY
     Dosage: 4.5 GM, (2.25 GM, 2 IN 1 D), ORAL
     Route: 048
     Dates: start: 20070104, end: 2007
  2. ARMODAFINIL [Concomitant]
  3. NORGESTREL W/ETHINYL ESTRADIOL [Concomitant]
  4. IBUPROFEN [Concomitant]
  5. BUDESONIDE W/FORMOTEROL FUMARATE [Suspect]
  6. ALBUTEROL [Concomitant]
  7. SUMATRIPTAN SUCCINATE [Concomitant]
  8. ETHINYL ESTRADIOL W/LEVONORGESTREL [Concomitant]
  9. TAPENTADOL [Concomitant]
  10. ALBUTEROL SULFATE [Concomitant]
  11. AMPHETAMINE, DEXTROAMPHETAMINE MIXED SALTS [Concomitant]
  12. ARIPIPRAZOLE [Concomitant]
  13. VILAZODONE [Concomitant]
  14. MAGNESIUM [Concomitant]
  15. VITAMIN B2 [Concomitant]
  16. BUDESONIDE W/FORMOTEROL FUMARATE [Concomitant]
  17. TAPENTADOL XR [Concomitant]

REACTIONS (10)
  - Gallbladder disorder [None]
  - Bronchitis [None]
  - Nasopharyngitis [None]
  - Tremor [None]
  - Hip arthroplasty [None]
  - Foot operation [None]
  - Somnolence [None]
  - Knee operation [None]
  - Feeling abnormal [None]
  - Headache [None]
